FAERS Safety Report 9456251 (Version 1)
Quarter: 2013Q3

REPORT INFORMATION
  Report Type: Spontaneous
  Country: US (occurrence: US)
  Receive Date: 20130813
  Receipt Date: 20130813
  Transmission Date: 20140515
  Serious: Yes (Other)
  Sender: FDA-Public Use
  Company Number: US-BAYER-2013-095135

PATIENT
  Age: 31 Year
  Sex: Female

DRUGS (1)
  1. MIRENA [Suspect]
     Indication: CONTRACEPTION
     Dosage: 20 MCG/24HR, CONT
     Route: 015
     Dates: start: 2010

REACTIONS (9)
  - Device dislocation [None]
  - Device expulsion [None]
  - Device difficult to use [None]
  - Device breakage [None]
  - Device difficult to use [None]
  - Abdominal pain lower [None]
  - Polymenorrhoea [None]
  - Metrorrhagia [None]
  - Abdominal pain [None]
